FAERS Safety Report 5509006-2 (Version None)
Quarter: 2007Q4

REPORT INFORMATION
  Report Type: 
  Country: None (occurrence: None)
  Receive Date: 20071105
  Receipt Date: 20071021
  Transmission Date: 20080405
  Serious: Yes (Life-Threatening, Hospitalization)
  Sender: FDA-Public Use
  Company Number: 2007RL000474

PATIENT
  Age: 43 Year
  Sex: Female

DRUGS (4)
  1. PROPRANOLOL HYDROCHLORIDE [Suspect]
     Indication: DRUG USE FOR UNKNOWN INDICATION
     Dosage: 20 MG; Q8H; PO
     Route: 048
     Dates: start: 20050901, end: 20050901
  2. PROPYLTHIOURACIL [Concomitant]
  3. HYDROCORTISONE [Concomitant]
  4. CEFTRIAXONE [Concomitant]

REACTIONS (6)
  - BASEDOW'S DISEASE [None]
  - CARDIO-RESPIRATORY ARREST [None]
  - DILATATION ATRIAL [None]
  - HAEMODYNAMIC INSTABILITY [None]
  - MITRAL VALVE PROLAPSE [None]
  - SINUS BRADYCARDIA [None]
